FAERS Safety Report 8538157-3 (Version None)
Quarter: 2012Q3

REPORT INFORMATION
  Report Type: 
  Country: None (occurrence: None)
  Receive Date: 20120726
  Receipt Date: 20120716
  Transmission Date: 20120928
  Serious: Yes (Other)
  Sender: FDA-Public Use
  Company Number: CL-AMGEN-CHLSP2012045251

PATIENT
  Sex: Female

DRUGS (5)
  1. ENBREL [Suspect]
     Indication: RHEUMATOID ARTHRITIS
     Dosage: UNK
     Dates: end: 20111201
  2. ANAESTHETICS [Concomitant]
     Indication: SURGERY
     Dosage: UNK
     Dates: start: 20120616
  3. METHOTREXATE [Suspect]
     Indication: RHEUMATOID ARTHRITIS
     Dosage: UNK
  4. ANTIINFLAMMATORY/ANTIRHEUMATIC PRODUCTS [Concomitant]
     Indication: RHEUMATOID ARTHRITIS
     Dosage: UNK
  5. PREDNISONE [Concomitant]
     Indication: RHEUMATOID ARTHRITIS
     Dosage: UNK

REACTIONS (3)
  - HYPERTENSION [None]
  - ARTHRALGIA [None]
  - VARICOSE VEIN [None]
